FAERS Safety Report 14018525 (Version 1)
Quarter: 2017Q3

REPORT INFORMATION
  Report Type: Spontaneous
  Country: US (occurrence: None)
  Receive Date: 20170928
  Receipt Date: 20170928
  Transmission Date: 20171128
  Serious: Yes (Hospitalization)
  Sender: FDA-Public Use
  Company Number: None

PATIENT
  Age: 66 Year
  Sex: Female
  Weight: 62.9 kg

DRUGS (4)
  1. ELOXATIN [Suspect]
     Active Substance: OXALIPLATIN
     Dates: end: 20170913
  2. LEUCOVORIN CALCIUM. [Suspect]
     Active Substance: LEUCOVORIN CALCIUM
     Dates: end: 20170913
  3. CAMPTOSAR [Suspect]
     Active Substance: IRINOTECAN HYDROCHLORIDE
     Dates: end: 20170731
  4. 5-FLUOROURACIL (5-FU) [Suspect]
     Active Substance: FLUOROURACIL
     Dates: end: 20170913

REACTIONS (13)
  - Dyspnoea [None]
  - Confusional state [None]
  - Pulmonary embolism [None]
  - Blood culture positive [None]
  - Dysuria [None]
  - Hypersomnia [None]
  - Complication associated with device [None]
  - Escherichia test positive [None]
  - Fatigue [None]
  - Memory impairment [None]
  - Pyelonephritis [None]
  - Eastern Cooperative Oncology Group performance status worsened [None]
  - Hypophagia [None]

NARRATIVE: CASE EVENT DATE: 20170923
